FAERS Safety Report 6939617-9 (Version None)
Quarter: 2010Q3

REPORT INFORMATION
  Report Type: 
  Country: None (occurrence: None)
  Receive Date: 20100820
  Receipt Date: 20100817
  Transmission Date: 20110219
  Serious: Yes (Other)
  Sender: FDA-Public Use
  Company Number: 2010SP044596

PATIENT
  Age: 40 Year
  Sex: Female
  Weight: 61 kg

DRUGS (3)
  1. DESOGESTREL AND ETHINYL ESTRADIOL [Suspect]
     Indication: CONTRACEPTION
     Dosage: ; PO
     Route: 048
     Dates: start: 20000101
  2. PROPRANOLOL [Suspect]
     Indication: TACHYCARDIA
     Dates: start: 20100817, end: 20100817
  3. DIAZEPAM [Suspect]
     Indication: PALPITATIONS
     Dates: start: 20100817, end: 20100817

REACTIONS (3)
  - DRUG INTERACTION [None]
  - PALPITATIONS [None]
  - TACHYCARDIA [None]
